FAERS Safety Report 4741656-3 (Version None)
Quarter: 2005Q3

REPORT INFORMATION
  Report Type: 
  Country: None (occurrence: None)
  Receive Date: 20050808
  Receipt Date: 20050728
  Transmission Date: 20060218
  Serious: Yes (Hospitalization)
  Sender: FDA-Public Use
  Company Number: 2005-05-1434

PATIENT
  Age: 54 Year
  Sex: Male
  Weight: 53 kg

DRUGS (2)
  1. PEG-INTRON [Suspect]
     Indication: HEPATITIS C
     Dosage: 80 MCG QW SUBCUTANEOUS
     Route: 058
     Dates: start: 20050510, end: 20050517
  2. REBETO (RIBAVIRIN) CAPSULES [Suspect]
     Indication: HEPATITIS C
     Dosage: 600 MG ORAL
     Route: 048
     Dates: start: 20050510, end: 20050519

REACTIONS (2)
  - HEADACHE [None]
  - HEPATITIS B [None]
